FAERS Safety Report 9432358 (Version 1)
Quarter: 2013Q3

REPORT INFORMATION
  Report Type: Spontaneous
  Country: US (occurrence: US)
  Receive Date: 20130731
  Receipt Date: 20130731
  Transmission Date: 20140515
  Serious: Yes (Hospitalization)
  Sender: FDA-Public Use
  Company Number: US-PFIZER INC-9701390

PATIENT
  Age: 8 Decade
  Sex: Male
  Weight: 81.18 kg

DRUGS (17)
  1. FELDENE [Suspect]
     Indication: BACK INJURY
     Dosage: 10 MG, 3X/DAY
     Route: 048
     Dates: start: 19900426
  2. FELDENE [Suspect]
     Dosage: 20 MG, 3X/DAY
     Route: 048
     Dates: start: 19910612, end: 19921029
  3. FELDENE [Suspect]
     Dosage: 25 MG, EVERY 6 HOURS
     Route: 048
     Dates: start: 19851113
  4. FELDENE [Suspect]
     Dosage: UNK
     Route: 048
     Dates: start: 19900426, end: 19921029
  5. INDOCIN [Suspect]
     Indication: INFLAMMATION
     Dosage: UNK
     Route: 048
     Dates: start: 198811, end: 19900425
  6. ALUMINUM HYDROXIDE\MAGNESIUM HYDROXIDE [Concomitant]
     Route: 048
  7. ASPIRIN [Concomitant]
     Indication: CARDIAC DISORDER
     Dosage: 81 MG, DAILY
  8. ATENOLOL [Concomitant]
     Indication: CARDIAC DISORDER
     Dosage: 25 MG, DAILY
  9. SOTALOL [Concomitant]
     Indication: CARDIAC DISORDER
     Dosage: 1.5 DF, UNK
  10. TAMSULOSIN HYDROCHLORIDE [Concomitant]
     Indication: PROSTATIC DISORDER
     Dosage: 0.4 MG, DAILY
  11. LEVOTHYROXINE [Concomitant]
     Indication: THYROID DISORDER
     Dosage: 0.025 MG, DAILY
  12. SIMVASTATIN [Concomitant]
     Indication: BLOOD CHOLESTEROL INCREASED
     Dosage: 20 MG, UNK
  13. TRAMADOL [Concomitant]
     Indication: BACK PAIN
     Dosage: 50 MG, AS NEEDED
  14. MECLIZINE HYDROCHLORIDE [Concomitant]
     Dosage: 12.5 MG, AS NEEDED
  15. NITROGLYCERIN [Concomitant]
     Indication: CARDIOVASCULAR EVENT PROPHYLAXIS
     Dosage: UNK, AS NEEDED
  16. ACETAMINOPHEN [Concomitant]
     Indication: BACK PAIN
     Dosage: UNK, AS NEEDED
  17. FELDENE [Suspect]
     Indication: JOINT INJURY
     Dosage: UNK
     Route: 048
     Dates: start: 19880802

REACTIONS (9)
  - Drug administration error [Unknown]
  - Abdominal pain upper [Unknown]
  - Headache [Unknown]
  - Melaena [Unknown]
  - Intentional overdose [Unknown]
  - Shock [Unknown]
  - Haemorrhage [Unknown]
  - Gastritis [Unknown]
  - Coronary artery disease [Unknown]
